FAERS Safety Report 5855602-2 (Version None)
Quarter: 2008Q3

REPORT INFORMATION
  Report Type: 
  Country: None (occurrence: None)
  Receive Date: 20080821
  Receipt Date: 20080806
  Transmission Date: 20090109
  Serious: Yes (Hospitalization)
  Sender: FDA-Public Use
  Company Number: 236661J08USA

PATIENT
  Age: 48 Year
  Sex: Female

DRUGS (2)
  1. REBIF [Suspect]
     Indication: MULTIPLE SCLEROSIS
     Dosage: 44 MCG,3 IN 1 WEEKS, SUBCUTANEOUS
     Route: 058
     Dates: start: 20020813, end: 20080616
  2. REBIF [Suspect]
     Indication: MULTIPLE SCLEROSIS
     Dosage: 44 MCG,3 IN 1 WEEKS, SUBCUTANEOUS
     Route: 058
     Dates: start: 20080101

REACTIONS (6)
  - AORTIC INJURY [None]
  - HAEMORRHAGE [None]
  - IATROGENIC INJURY [None]
  - PROCEDURAL COMPLICATION [None]
  - SCAR [None]
  - URETERIC STENOSIS [None]
